FAERS Safety Report 6020063-X (Version None)
Quarter: 2008Q4

REPORT INFORMATION
  Report Type: 
  Country: None (occurrence: None)
  Receive Date: 20081226
  Receipt Date: 20081124
  Transmission Date: 20090506
  Serious: No
  Sender: FDA-Public Use
  Company Number: US-BAYER-200837785NA

PATIENT
  Age: 93 Year

DRUGS (3)
  1. AVELOX [Suspect]
     Indication: DRUG USE FOR UNKNOWN INDICATION
     Route: 042
  2. SOLU-MEDROL [Concomitant]
  3. MAGNESIUM SULFATE [Concomitant]

REACTIONS (2)
  - ERYTHEMA [None]
  - RASH [None]
